FAERS Safety Report 9009228 (Version 3)
Quarter: 2013Q1

REPORT INFORMATION
  Report Type: Report from Study
  Country: US (occurrence: US)
  Receive Date: 20130111
  Receipt Date: 20130220
  Transmission Date: 20140127
  Serious: Yes (Hospitalization)
  Sender: FDA-Public Use
  Company Number: US-TEVA-380166USA

PATIENT
  Age: 10 Year
  Sex: Male

DRUGS (16)
  1. MERCAPTOPURINE [Suspect]
     Indication: ACUTE LYMPHOCYTIC LEUKAEMIA
     Dates: start: 20121030, end: 20121126
  2. DASATINIB [Suspect]
     Indication: ACUTE LYMPHOCYTIC LEUKAEMIA
     Dosage: 70 MILLIGRAM DAILY;
     Route: 048
     Dates: start: 20121008
  3. ARA-C [Suspect]
     Indication: ACUTE LYMPHOCYTIC LEUKAEMIA
     Dates: start: 20121130, end: 20121203
  4. CYCLOPHOSPHAMIDE [Suspect]
     Indication: ACUTE LYMPHOCYTIC LEUKAEMIA
     Dates: start: 20130105
  5. METHOTREXATE [Suspect]
     Indication: ACUTE LYMPHOCYTIC LEUKAEMIA
     Dates: start: 20130104, end: 20130105
  6. VINCRISTINE [Suspect]
     Indication: ACUTE LYMPHOCYTIC LEUKAEMIA
     Dates: start: 20130105, end: 20130105
  7. DIPHENHYDRAMINE [Concomitant]
     Dates: start: 20130110, end: 20130112
  8. ONDANSETRON [Concomitant]
     Dates: start: 20130105
  9. SIMETHICONE [Concomitant]
     Dates: start: 20130106
  10. VANCOMYCIN [Concomitant]
     Dates: start: 20130110, end: 20130115
  11. DEXAMETHASONE [Concomitant]
     Dates: start: 20130104
  12. FILGRASTIM [Concomitant]
     Dates: start: 20130110, end: 20130115
  13. CHOLESTYRAMINE [Concomitant]
     Dates: start: 20130110, end: 20130115
  14. MAALOX [Concomitant]
     Dates: start: 20130110, end: 20130112
  15. MORPHINE [Concomitant]
     Dates: start: 20130112, end: 20130115
  16. LANOLIN [Concomitant]
     Dates: start: 20130112, end: 20130112

REACTIONS (3)
  - Febrile neutropenia [Recovered/Resolved]
  - Pleural effusion [Recovered/Resolved]
  - Blood creatinine increased [Not Recovered/Not Resolved]
